FAERS Safety Report 21708860 (Version 1)
Quarter: 2022Q4

REPORT INFORMATION
  Report Type: Spontaneous
  Country: IT (occurrence: IT)
  Receive Date: 20221210
  Receipt Date: 20221210
  Transmission Date: 20230112
  Serious: Yes (Hospitalization)
  Sender: FDA-Public Use
  Company Number: IT-PFIZER INC-PV202200112284

PATIENT
  Age: 52 Year
  Sex: Female

DRUGS (3)
  1. GENTAMICIN [Suspect]
     Active Substance: GENTAMICIN
     Indication: Pneumonia klebsiella
     Dosage: 8 MG
     Route: 065
  2. MEROPENEM [Suspect]
     Active Substance: MEROPENEM
     Indication: Pneumonia klebsiella
     Dosage: 6 G, QD (2 G X 3 IN EXTENDED INFUSION)
     Route: 065
  3. AVIBACTAM SODIUM\CEFTAZIDIME [Suspect]
     Active Substance: AVIBACTAM SODIUM\CEFTAZIDIME
     Indication: Pneumonia klebsiella
     Dosage: 2.5 G (2.5 G FOR 3 IN CONTINUOUS INFUSION)
     Route: 042

REACTIONS (4)
  - Brain abscess [Unknown]
  - Condition aggravated [Unknown]
  - Nervous system disorder [Unknown]
  - Drug resistance [Unknown]
